FAERS Safety Report 8863964 (Version 1)
Quarter: 2012Q4

REPORT INFORMATION
  Report Type: 
  Country: US (occurrence: US)
  Receive Date: 20121024
  Receipt Date: 20121024
  Transmission Date: 20130627
  Serious: No
  Sender: FDA-Public Use
  Company Number: US-AMGEN-USASP2011064970

PATIENT
  Age: 50 Year
  Sex: Female
  Weight: 77.1 kg

DRUGS (6)
  1. ENBREL [Suspect]
     Indication: PRODUCT USED FOR UNKNOWN INDICATION
     Dosage: 25 mg, 2 times/wk
  2. MULTIVITAMIN [Concomitant]
  3. GLUCOSAMINE + CHONDROITIN [Concomitant]
  4. DICLOFENAC [Concomitant]
     Dosage: 50 mg, UNK
  5. TYLENOL [Concomitant]
     Dosage: 650 mg, UNK
  6. TRAMADOL [Concomitant]
     Dosage: 200 mg, UNK

REACTIONS (1)
  - Nasopharyngitis [Unknown]
